FAERS Safety Report 9486783 (Version 3)
Quarter: 2014Q1

REPORT INFORMATION
  Report Type: Spontaneous
  Country: US (occurrence: US)
  Receive Date: 20130829
  Receipt Date: 20140305
  Transmission Date: 20141002
  Serious: Yes (Hospitalization)
  Sender: FDA-Public Use
  Company Number: US-B.I. PHARMACEUTICALS,INC./RIDGEFIELD-2013-BI-26383BP

PATIENT
  Sex: Male
  Weight: 104.33 kg

DRUGS (11)
  1. PRADAXA [Suspect]
     Indication: ATRIAL FIBRILLATION
     Dosage: 300 MG
     Route: 048
     Dates: start: 20110616, end: 20110825
  2. ASPIRIN [Suspect]
     Indication: PRODUCT USED FOR UNKNOWN INDICATION
     Dosage: 81 MG
     Route: 065
  3. TRIAMTERENE/HCTZ [Concomitant]
     Route: 065
  4. LOVASTATIN [Concomitant]
     Dosage: 40 MG
     Route: 065
  5. LABETALOL [Concomitant]
     Dosage: 400 MG
     Route: 065
  6. TERAZOSIN [Concomitant]
     Dosage: 10 MG
     Route: 065
  7. FLOMAX [Concomitant]
     Route: 065
  8. SPIRIVA [Concomitant]
     Dosage: 18 MCG
     Route: 065
     Dates: start: 2009
  9. MULTAQ [Concomitant]
     Dosage: 800 MG
     Route: 065
     Dates: start: 2011
  10. POTASSIUM [Concomitant]
     Route: 065
     Dates: start: 2010
  11. DILTIAZEM [Concomitant]
     Route: 065
     Dates: start: 2011

REACTIONS (3)
  - Gastrointestinal haemorrhage [Recovered/Resolved]
  - Anaemia [Unknown]
  - Gastroenteritis [Unknown]
